FAERS Safety Report 22218806 (Version 1)
Quarter: 2023Q2

REPORT INFORMATION
  Report Type: Spontaneous
  Country: US (occurrence: None)
  Receive Date: 20230415
  Receipt Date: 20230415
  Transmission Date: 20230721
  Serious: Yes (Life-Threatening, Disabling, Other)
  Sender: FDA-Public Use
  Company Number: None

PATIENT
  Age: 48 Year
  Sex: Male
  Weight: 80 kg

DRUGS (1)
  1. LEVOFLOXACIN [Suspect]
     Active Substance: LEVOFLOXACIN
     Indication: Drug therapy
     Dosage: FREQUENCY : DAILY;?
     Route: 048
     Dates: start: 20220119, end: 20220121

REACTIONS (14)
  - Plantar fasciitis [None]
  - Tendon disorder [None]
  - Rhabdomyolysis [None]
  - Apnoea [None]
  - Tinnitus [None]
  - Insomnia [None]
  - Anxiety [None]
  - Tremor [None]
  - Fatigue [None]
  - Palpitations [None]
  - Rash [None]
  - Inflammation [None]
  - Toxicity to various agents [None]
  - Emotional distress [None]

NARRATIVE: CASE EVENT DATE: 20220121
